FAERS Safety Report 7197357-8 (Version None)
Quarter: 2010Q4

REPORT INFORMATION
  Report Type: 
  Country: None (occurrence: None)
  Receive Date: 20101227
  Receipt Date: 20101218
  Transmission Date: 20110411
  Serious: Yes (Other)
  Sender: FDA-Public Use
  Company Number: US-PFIZER INC-2010175736

PATIENT
  Sex: Female

DRUGS (1)
  1. CHANTIX [Suspect]
     Dosage: UNK
     Dates: start: 20080201

REACTIONS (4)
  - ANXIETY [None]
  - DEPRESSION [None]
  - NIGHTMARE [None]
  - POST-TRAUMATIC STRESS DISORDER [None]
